FAERS Safety Report 7330880-1 (Version None)
Quarter: 2011Q1

REPORT INFORMATION
  Report Type: 
  Country: None (occurrence: None)
  Receive Date: 20110304
  Receipt Date: 20110217
  Transmission Date: 20110831
  Serious: Yes (Life-Threatening, Hospitalization, Other)
  Sender: FDA-Public Use
  Company Number: JP-CELGENEUS-087-21880-10121759

PATIENT
  Sex: Male
  Weight: 64.05 kg

DRUGS (7)
  1. ASPIRIN [Concomitant]
     Dosage: 100 MILLIGRAM
     Route: 065
  2. REVLIMID [Suspect]
     Dosage: 10 MILLIGRAM
     Route: 048
     Dates: start: 20101027, end: 20101031
  3. ALDIOXA [Concomitant]
     Dosage: 100 MILLIGRAM
     Route: 065
  4. REVLIMID [Suspect]
     Dosage: 5 MILLIGRAM
     Route: 048
     Dates: start: 20101109, end: 20101124
  5. HICEE [Concomitant]
     Dosage: 3 GRAM
     Route: 065
  6. LANSOPRAZOLE [Concomitant]
     Dosage: 15 MILLIGRAM
     Route: 065
  7. MEDICON [Concomitant]
     Dosage: 45 MILLIGRAM
     Route: 065

REACTIONS (3)
  - RASH [None]
  - EYELID OEDEMA [None]
  - NEUTROPENIA [None]
